FAERS Safety Report 20513015 (Version 1)
Quarter: 2022Q1

REPORT INFORMATION
  Report Type: Spontaneous
  Country: US (occurrence: US)
  Receive Date: 20220224
  Receipt Date: 20220224
  Transmission Date: 20220423
  Serious: No
  Sender: FDA-Public Use
  Company Number: US-AMNEAL PHARMACEUTICALS-2019-AMRX-02135

PATIENT
  Age: 69 Year
  Sex: Male

DRUGS (6)
  1. RYTARY [Suspect]
     Active Substance: CARBIDOPA\LEVODOPA
     Indication: Parkinson^s disease
     Dosage: 48.75/195MG, UNK
     Route: 048
     Dates: end: 20210129
  2. RYTARY [Suspect]
     Active Substance: CARBIDOPA\LEVODOPA
     Dosage: 48.75/195MG, 2 CAPSULES, QID
     Route: 048
  3. RYTARY [Suspect]
     Active Substance: CARBIDOPA\LEVODOPA
     Dosage: 48.75/195MG, 2 CAPSULES, QID AND AN ADDITIONAL 1 OR 2 CAPSULES AT BEDTIME
     Route: 048
     Dates: start: 20191003
  4. RYTARY [Suspect]
     Active Substance: CARBIDOPA\LEVODOPA
     Dosage: 23.75/95MG, UNK
     Route: 048
     Dates: start: 20200310
  5. RYTARY [Suspect]
     Active Substance: CARBIDOPA\LEVODOPA
     Dosage: 48.75/195MG, 11 CAP, DAILY (3 CAP AT 5AM, 2 CAP AT 9AM, 3 CAP AT 1PM, 2 CAP AT 5PM, AND 1 CAP EVERY
     Route: 048
     Dates: end: 20210209
  6. RYTARY [Suspect]
     Active Substance: CARBIDOPA\LEVODOPA
     Dosage: 48.75/195MG, 12 CAPSULES, (3 CAP AT 5AM, 2 CAP AT 9AM, 3 CAP AT 1PM, 2 CAP AT 5PM, AND 2 CAP EVERY N
     Route: 048
     Dates: start: 20210209, end: 2021

REACTIONS (2)
  - Gait disturbance [Unknown]
  - Therapy cessation [Unknown]

NARRATIVE: CASE EVENT DATE: 20210129
